FAERS Safety Report 10555110 (Version 1)
Quarter: 2014Q4

REPORT INFORMATION
  Report Type: Spontaneous
  Country: US (occurrence: None)
  Receive Date: 20141029
  Receipt Date: 20141029
  Transmission Date: 20150529
  Serious: No
  Sender: FDA-Public Use
  Company Number: None

PATIENT
  Age: 37 Year
  Sex: Female
  Weight: 54.43 kg

DRUGS (1)
  1. MUCINEX DM [Suspect]
     Active Substance: DEXTROMETHORPHAN HYDROBROMIDE\GUAIFENESIN
     Indication: LOWER RESPIRATORY TRACT INFECTION
     Dates: start: 20141026, end: 20141028

REACTIONS (4)
  - Diarrhoea [None]
  - Dizziness [None]
  - Abdominal discomfort [None]
  - Somnolence [None]

NARRATIVE: CASE EVENT DATE: 20141026
